FAERS Safety Report 16657235 (Version 4)
Quarter: 2019Q3

REPORT INFORMATION
  Report Type: Report from Study
  Country: None (occurrence: IE)
  Receive Date: 20190801
  Receipt Date: 20190816
  Transmission Date: 20191004
  Serious: No
  Sender: FDA-Public Use
  Company Number: IE-ABBVIE-18S-229-2541954-00

PATIENT
  Age: 58 Year
  Sex: Female

DRUGS (43)
  1. DUODOPA [Suspect]
     Active Substance: CARBIDOPA\LEVODOPA
     Dosage: ED OF 0.8ML.?PATIENT HAS TOOK THE 5 EXTRA DOSES
     Route: 050
     Dates: start: 20190112, end: 20190113
  2. DUODOPA [Suspect]
     Active Substance: CARBIDOPA\LEVODOPA
     Dosage: 1 CASSETTE. CR: 5.2ML/HR?CONTINUOUS
     Route: 050
     Dates: start: 20190224, end: 2019
  3. DUODOPA [Suspect]
     Active Substance: CARBIDOPA\LEVODOPA
     Dosage: 1 CASSETTE CONTINUOUS DOSE INCREASED TO 2.7MLS/HOUR
     Route: 050
     Dates: start: 20190405, end: 2019
  4. DUODOPA [Suspect]
     Active Substance: CARBIDOPA\LEVODOPA
     Dosage: CONTINUOUS 1 CASSETTE?CR: 2.5ML/HR
     Route: 050
     Dates: start: 20190428, end: 20190513
  5. DUODOPA [Suspect]
     Active Substance: CARBIDOPA\LEVODOPA
     Dosage: CD 2.6MLS
     Route: 050
     Dates: start: 20181104, end: 201811
  6. DUODOPA [Suspect]
     Active Substance: CARBIDOPA\LEVODOPA
     Dosage: 1 CASSETTE.?CR: INCREASE TO 2.7ML/HR
     Route: 050
     Dates: start: 20181117, end: 20181217
  7. DUODOPA [Suspect]
     Active Substance: CARBIDOPA\LEVODOPA
     Dosage: CONTINUOUS DOSE 2.6MLS/HR, 1 CASSETTE
     Route: 050
     Dates: start: 20190113, end: 20190120
  8. DUODOPA [Suspect]
     Active Substance: CARBIDOPA\LEVODOPA
     Dosage: 1 CASSETTE CONTINUOUS DOSE INCREASED TO 2.7MLS, CONTINUOUS
     Route: 050
     Dates: start: 20190110, end: 2019
  9. DUODOPA [Suspect]
     Active Substance: CARBIDOPA\LEVODOPA
     Dosage: ED DECREASED FROM 0.8MLS TO 0.5MLS
     Route: 050
     Dates: start: 2019, end: 2019
  10. DUODOPA [Suspect]
     Active Substance: CARBIDOPA\LEVODOPA
     Dosage: CD: 2.3 MLS/HOUR?CONTINUOUS
     Route: 050
     Dates: start: 20190513, end: 20190514
  11. DUODOPA [Suspect]
     Active Substance: CARBIDOPA\LEVODOPA
     Route: 050
     Dates: start: 20190530, end: 20190531
  12. DUODOPA [Suspect]
     Active Substance: CARBIDOPA\LEVODOPA
     Dosage: EXTRA DOSE INCREASE TO 0.7MLS
     Route: 050
     Dates: start: 2019, end: 20190205
  13. DUODOPA [Suspect]
     Active Substance: CARBIDOPA\LEVODOPA
     Dosage: CONTINUOUS RATE: 2.5ML/HR
     Route: 050
     Dates: start: 2019, end: 20190501
  14. DUODOPA [Suspect]
     Active Substance: CARBIDOPA\LEVODOPA
     Dosage: 1 CASSETTE?CONTINUOUS RATE: 2.8ML/HR, CONTINUOUS
     Route: 050
     Dates: start: 20190427, end: 20190428
  15. DUODOPA [Suspect]
     Active Substance: CARBIDOPA\LEVODOPA
     Dosage: CD: 2.4 MLS/HOUR?CONTINUOUS
     Route: 050
     Dates: start: 20190514, end: 201905
  16. DUODOPA [Suspect]
     Active Substance: CARBIDOPA\LEVODOPA
     Dosage: EXTRA DOSE 1ML/HR
     Route: 050
     Dates: start: 20190719, end: 20190722
  17. BETMIGA [Concomitant]
     Active Substance: MIRABEGRON
     Indication: PRODUCT USED FOR UNKNOWN INDICATION
     Route: 048
  18. DUODOPA [Suspect]
     Active Substance: CARBIDOPA\LEVODOPA
     Dosage: 1 CASSETTE. CR: 2.7ML/HR?CONTINUOUS
     Route: 050
     Dates: start: 20190223, end: 20190224
  19. DUODOPA [Suspect]
     Active Substance: CARBIDOPA\LEVODOPA
     Dosage: CONTINUOUS DOSE 2.6MLS/HOUR
     Route: 050
     Dates: start: 20190401, end: 20190405
  20. DUODOPA [Suspect]
     Active Substance: CARBIDOPA\LEVODOPA
     Dosage: MD DECREASED FROM 5.5MLS TO 5.2MLS
     Route: 050
     Dates: start: 20181217
  21. DUODOPA [Suspect]
     Active Substance: CARBIDOPA\LEVODOPA
     Dosage: CD 2.4MLS/HR
     Route: 050
     Dates: start: 20190113, end: 201901
  22. DUODOPA [Suspect]
     Active Substance: CARBIDOPA\LEVODOPA
     Dosage: MD REDUCED TO 5.8 ML
     Route: 050
     Dates: start: 20190209, end: 201902
  23. DUODOPA [Suspect]
     Active Substance: CARBIDOPA\LEVODOPA
     Dosage: ED IN MORNING DECREASED TO 0.5MLS AS REQ ED IN EVENING 0.8 MLS AS REQ CD 2.7MLS/HOUR
     Route: 050
     Dates: start: 20190313, end: 20190401
  24. DUODOPA [Suspect]
     Active Substance: CARBIDOPA\LEVODOPA
     Dosage: 1 CASSETTE?EXTRA DOSE: 0.8ML/HR, CONTINUOUS
     Route: 050
     Dates: start: 20190501, end: 2019
  25. DUODOPA [Suspect]
     Active Substance: CARBIDOPA\LEVODOPA
     Route: 050
     Dates: start: 2019, end: 20190427
  26. DUODOPA [Suspect]
     Active Substance: CARBIDOPA\LEVODOPA
     Dosage: ED: 1 ML
     Route: 050
     Dates: start: 201906, end: 20190614
  27. DUODOPA [Suspect]
     Active Substance: CARBIDOPA\LEVODOPA
     Dosage: 1 CASSETTE?CONTINUOUS DOSE DECREASED TO 2.1 MLS
     Route: 050
     Dates: start: 20190724, end: 20190728
  28. SINEMET CR [Suspect]
     Active Substance: CARBIDOPA\LEVODOPA
     Dosage: NIGHT
     Route: 065
     Dates: start: 20190530, end: 2019
  29. CITALOPRAM [Concomitant]
     Active Substance: CITALOPRAM HYDROBROMIDE
     Indication: PRODUCT USED FOR UNKNOWN INDICATION
     Route: 050
  30. MOVICOL [Concomitant]
     Active Substance: POLYETHYLENE GLYCOL 3350\POTASSIUM CHLORIDE\SODIUM BICARBONATE\SODIUM CHLORIDE
     Indication: PRODUCT USED FOR UNKNOWN INDICATION
     Dosage: SACHET
     Route: 050
  31. DUODOPA [Suspect]
     Active Substance: CARBIDOPA\LEVODOPA
     Dosage: CD2.4MLS
     Route: 050
     Dates: start: 201811, end: 20181117
  32. DUODOPA [Suspect]
     Active Substance: CARBIDOPA\LEVODOPA
     Dosage: MD: 5.6 ML
     Route: 050
     Dates: start: 20190209, end: 20190212
  33. DUODOPA [Suspect]
     Active Substance: CARBIDOPA\LEVODOPA
     Dosage: 1 CASSETTE. MD: 5.4 MLS?CONTINUOUS
     Route: 050
     Dates: start: 20190222, end: 20190223
  34. DUODOPA [Suspect]
     Active Substance: CARBIDOPA\LEVODOPA
     Dosage: 1 CASSETTE EXTRA DOSE INCREASED TO 1.5 ML/HR
     Route: 050
     Dates: start: 20190722, end: 20190724
  35. DUODOPA [Suspect]
     Active Substance: CARBIDOPA\LEVODOPA
     Dosage: CD2.2 ML/HOUR AND MD 6.5 ML
     Route: 050
     Dates: start: 20181030, end: 20181104
  36. DUODOPA [Suspect]
     Active Substance: CARBIDOPA\LEVODOPA
     Dosage: MORNING DOSE 5.5MLS
     Route: 050
     Dates: start: 20190212, end: 20190222
  37. DUODOPA [Suspect]
     Active Substance: CARBIDOPA\LEVODOPA
     Dosage: ED: 0.9ML
     Route: 050
     Dates: start: 20190614, end: 20190703
  38. DUODOPA [Suspect]
     Active Substance: CARBIDOPA\LEVODOPA
     Dosage: EXTRA DOSE REDUCED TO 0.7ML/HR
     Route: 050
     Dates: start: 20190703, end: 201907
  39. DUODOPA [Suspect]
     Active Substance: CARBIDOPA\LEVODOPA
     Route: 050
     Dates: start: 20190710, end: 20190719
  40. SINEMET CR [Suspect]
     Active Substance: CARBIDOPA\LEVODOPA
     Indication: PRODUCT USED FOR UNKNOWN INDICATION
     Dosage: NIGHT
     Route: 050
  41. DUODOPA [Suspect]
     Active Substance: CARBIDOPA\LEVODOPA
     Indication: PARKINSON^S DISEASE
     Dosage: CD 2.3 ML/HOUR AND MD 6.9 ML
     Route: 050
     Dates: start: 20181002, end: 20181030
  42. DUODOPA [Suspect]
     Active Substance: CARBIDOPA\LEVODOPA
     Dosage: EXTRA DOSE 0.7MLS
     Route: 050
     Dates: end: 20190313
  43. MIRTAZAPINE. [Concomitant]
     Active Substance: MIRTAZAPINE
     Indication: PRODUCT USED FOR UNKNOWN INDICATION
     Dosage: NIGHT
     Route: 050

REACTIONS (32)
  - On and off phenomenon [Recovering/Resolving]
  - Stress [Recovered/Resolved]
  - Restlessness [Recovered/Resolved]
  - Device issue [Recovering/Resolving]
  - Dyskinesia [Recovered/Resolved]
  - On and off phenomenon [Recovered/Resolved]
  - Dyskinesia [Recovered/Resolved]
  - General symptom [Recovered/Resolved]
  - Fall [Recovered/Resolved]
  - Anxiety [Recovered/Resolved]
  - Freezing phenomenon [Recovered/Resolved]
  - On and off phenomenon [Recovered/Resolved]
  - Drug level increased [Recovering/Resolving]
  - Drug level increased [Recovered/Resolved]
  - Drug ineffective [Recovering/Resolving]
  - Emotional distress [Recovering/Resolving]
  - Bradykinesia [Recovered/Resolved]
  - Therapeutic product effect incomplete [Recovered/Resolved]
  - Hyperkinesia [Recovered/Resolved]
  - Drug ineffective [Recovered/Resolved]
  - Condition aggravated [Recovered/Resolved]
  - Freezing phenomenon [Recovered/Resolved]
  - On and off phenomenon [Recovered/Resolved]
  - Anxiety [Recovered/Resolved]
  - On and off phenomenon [Recovered/Resolved]
  - General symptom [Not Recovered/Not Resolved]
  - Drug ineffective [Recovered/Resolved]
  - Drug ineffective [Recovered/Resolved]
  - Limb discomfort [Recovered/Resolved]
  - Condition aggravated [Not Recovered/Not Resolved]
  - Dyskinesia [Recovered/Resolved]
  - On and off phenomenon [Recovered/Resolved]

NARRATIVE: CASE EVENT DATE: 20181029
